FAERS Safety Report 9257786 (Version 1)
Quarter: 2013Q2

REPORT INFORMATION
  Report Type: Spontaneous
  Country: FR (occurrence: FR)
  Receive Date: 20130426
  Receipt Date: 20130426
  Transmission Date: 20140414
  Serious: Yes (Hospitalization, Other)
  Sender: FDA-Public Use
  Company Number: FR-UCBSA-083939

PATIENT
  Age: 45 Year
  Sex: Female

DRUGS (3)
  1. VIMPAT [Suspect]
     Indication: PARTIAL SEIZURES
     Dosage: DAILY DOSE: 300MG
     Route: 048
     Dates: start: 20121106, end: 2013
  2. TEGRETOL [Concomitant]
     Dosage: PROLONGED RELEASE 200MG, DAILY DOSE 1.2G
  3. LYRICA [Concomitant]
     Indication: EPILEPSY

REACTIONS (6)
  - Confusional state [Recovering/Resolving]
  - Epilepsy [Unknown]
  - Aggression [Unknown]
  - Insomnia [Unknown]
  - Influenza [Unknown]
  - Depressed level of consciousness [Unknown]
